FAERS Safety Report 25956304 (Version 1)
Quarter: 2025Q4

REPORT INFORMATION
  Report Type: Spontaneous
  Country: US (occurrence: None)
  Receive Date: 20251023
  Receipt Date: 20251023
  Transmission Date: 20260118
  Serious: Yes (Hospitalization)
  Sender: FDA-CTU
  Company Number: None

PATIENT
  Age: 58 Year
  Sex: Female
  Weight: 51 kg

DRUGS (1)
  1. CALASPARGASE PEGOL-MKNL [Suspect]
     Active Substance: CALASPARGASE PEGOL-MKNL
     Dates: start: 20250924

REACTIONS (5)
  - Pyrexia [None]
  - Abdominal pain [None]
  - Blood bilirubin increased [None]
  - Blood alkaline phosphatase increased [None]
  - Bile duct stent insertion [None]

NARRATIVE: CASE EVENT DATE: 20251015
